APPROVED DRUG PRODUCT: VANCOMYCIN HYDROCHLORIDE
Active Ingredient: VANCOMYCIN HYDROCHLORIDE
Strength: EQ 250MG BASE/VIAL **Federal Register determination that product was not discontinued or withdrawn for safety or effectiveness reasons**
Dosage Form/Route: POWDER;INTRAVENOUS
Application: N209481 | Product #001
Applicant: MYLAN LABORATORIES LTD
Approved: Jul 10, 2018 | RLD: Yes | RS: No | Type: DISCN